FAERS Safety Report 20818235 (Version 1)
Quarter: 2022Q2

REPORT INFORMATION
  Report Type: Spontaneous
  Country: US (occurrence: None)
  Receive Date: 20220511
  Receipt Date: 20220511
  Transmission Date: 20220720
  Serious: Yes (Disabling, Other)
  Sender: FDA-Public Use
  Company Number: None

PATIENT
  Age: 34 Year
  Sex: Female
  Weight: 81 kg

DRUGS (1)
  1. ZUBSOLV [Suspect]
     Active Substance: BUPRENORPHINE HYDROCHLORIDE\NALOXONE HYDROCHLORIDE
     Indication: Drug dependence
     Route: 060
     Dates: start: 20200309

REACTIONS (4)
  - Tooth fracture [None]
  - Insomnia [None]
  - Feeding disorder [None]
  - Loss of personal independence in daily activities [None]

NARRATIVE: CASE EVENT DATE: 20211210
